FAERS Safety Report 4265137-9 (Version None)
Quarter: 2004Q1

REPORT INFORMATION
  Report Type: 
  Country: None (occurrence: None)
  Receive Date: 20040106
  Receipt Date: 20040106
  Transmission Date: 20041129
  Serious: No
  Sender: FDA-Public Use
  Company Number: None

PATIENT
  Age: 73 Year
  Sex: Female
  Weight: 68.0396 kg

DRUGS (5)
  1. AMIODARONE HCL [Suspect]
     Indication: ATRIAL FIBRILLATION
     Dosage: 2/27/2002-400MG, 3/8/2002-300 MG
     Dates: start: 20030301, end: 20030611
  2. AMIODARONE HCL [Suspect]
     Indication: ATRIAL FIBRILLATION
     Dosage: 2/27/2002-400MG, 3/8/2002-300 MG
     Dates: start: 20020227
  3. AMIODARONE HCL [Suspect]
     Indication: ATRIAL FIBRILLATION
     Dosage: 2/27/2002-400MG, 3/8/2002-300 MG
     Dates: start: 20020308
  4. AMIODARONE HCL [Suspect]
     Indication: ATRIAL FIBRILLATION
     Dosage: 2/27/2002-400MG, 3/8/2002-300 MG
     Dates: start: 20020322
  5. OXYGEN [Concomitant]

REACTIONS (10)
  - DIFFICULTY IN WALKING [None]
  - DYSPNOEA [None]
  - FATIGUE [None]
  - HAEMOPTYSIS [None]
  - LUNG CONSOLIDATION [None]
  - LUNG INFILTRATION [None]
  - PLEURAL EFFUSION [None]
  - PULMONARY TOXICITY [None]
  - RESPIRATORY DISORDER [None]
  - WEIGHT DECREASED [None]
